FAERS Safety Report 7417420-3 (Version None)
Quarter: 2011Q2

REPORT INFORMATION
  Report Type: 
  Country: None (occurrence: None)
  Receive Date: 20110415
  Receipt Date: 20110404
  Transmission Date: 20111010
  Serious: No
  Sender: FDA-Public Use
  Company Number: US-JNJFOC-20110402581

PATIENT
  Sex: Female
  Weight: 64.41 kg

DRUGS (4)
  1. FENTANYL-100 [Suspect]
     Indication: RHEUMATOID ARTHRITIS
     Route: 062
  2. FENTANYL-100 [Suspect]
     Indication: OSTEOARTHRITIS
     Route: 062
  3. FENTANYL-100 [Suspect]
     Route: 062
  4. FENTANYL-100 [Suspect]
     Route: 062

REACTIONS (6)
  - PRODUCT QUALITY ISSUE [None]
  - WRONG TECHNIQUE IN DRUG USAGE PROCESS [None]
  - DRUG ADMINISTERED AT INAPPROPRIATE SITE [None]
  - DRUG DOSE OMISSION [None]
  - PAIN [None]
  - APPLICATION SITE IRRITATION [None]
